FAERS Safety Report 11055497 (Version 1)
Quarter: 2015Q2

REPORT INFORMATION
  Report Type: Spontaneous
  Country: US (occurrence: None)
  Receive Date: 20150421
  Receipt Date: 20150421
  Transmission Date: 20150821
  Serious: Yes (Other)
  Sender: FDA-Public Use
  Company Number: None

PATIENT
  Age: 39 Year
  Sex: Male

DRUGS (1)
  1. AMANTADINE/IBU/DECADRON/LIDOCAIN [Suspect]
     Active Substance: AMANTADINE\DEXAMETHASONE\IBUPROFEN\LIDOCAINE
     Indication: POSTOPERATIVE CARE
     Dosage: 1-2 PUMPS TID TOPICAL
     Route: 061
     Dates: start: 20150410, end: 20150414

REACTIONS (4)
  - Paraesthesia [None]
  - Burning sensation [None]
  - Skin discolouration [None]
  - Skin irritation [None]

NARRATIVE: CASE EVENT DATE: 20150414
